FAERS Safety Report 12100238 (Version 1)
Quarter: 2016Q1

REPORT INFORMATION
  Report Type: Spontaneous
  Country: US (occurrence: US)
  Receive Date: 20160222
  Receipt Date: 20160222
  Transmission Date: 20160526
  Serious: Yes (Other)
  Sender: FDA-Public Use
  Company Number: US-JNJFOC-20160120789

PATIENT
  Age: 23 Year
  Sex: Male

DRUGS (3)
  1. INVEGA SUSTENNA [Suspect]
     Active Substance: PALIPERIDONE PALMITATE
     Indication: SCHIZOPHRENIA
     Dosage: LOADING DOSE
     Route: 030
     Dates: start: 20151214, end: 20151214
  2. KEPPRA [Concomitant]
     Active Substance: LEVETIRACETAM
     Indication: PRODUCT USED FOR UNKNOWN INDICATION
     Route: 065
  3. INVEGA SUSTENNA [Suspect]
     Active Substance: PALIPERIDONE PALMITATE
     Indication: SCHIZOPHRENIA
     Dosage: LOADING DOSE
     Route: 030
     Dates: start: 20151214, end: 20151214

REACTIONS (3)
  - Drug prescribing error [Unknown]
  - Seizure [Unknown]
  - Lethargy [Unknown]

NARRATIVE: CASE EVENT DATE: 201512
